FAERS Safety Report 17767689 (Version 1)
Quarter: 2020Q2

REPORT INFORMATION
  Report Type: Report from Study
  Country: BR (occurrence: BR)
  Receive Date: 20200511
  Receipt Date: 20200511
  Transmission Date: 20200714
  Serious: Yes (Other)
  Sender: FDA-Public Use
  Company Number: NVSC2020BR034832

PATIENT
  Sex: Female

DRUGS (2)
  1. COSENTYX [Suspect]
     Active Substance: SECUKINUMAB
     Indication: PSORIASIS
     Dosage: 300 MG
     Route: 065
     Dates: start: 20200110
  2. COSENTYX [Suspect]
     Active Substance: SECUKINUMAB
     Dosage: 300 MG
     Route: 065
     Dates: start: 20200407

REACTIONS (13)
  - Scab [Recovering/Resolving]
  - Skin haemorrhage [Recovering/Resolving]
  - Pruritus [Recovering/Resolving]
  - Anxiety [Recovering/Resolving]
  - Psoriasis [Recovering/Resolving]
  - Tension [Recovering/Resolving]
  - Expired product administered [Unknown]
  - Memory impairment [Not Recovered/Not Resolved]
  - Scratch [Recovering/Resolving]
  - Skin exfoliation [Recovering/Resolving]
  - Dementia Alzheimer^s type [Unknown]
  - Scar [Recovering/Resolving]
  - Skin discolouration [Recovering/Resolving]
